FAERS Safety Report 22526737 (Version 1)
Quarter: 2023Q2

REPORT INFORMATION
  Report Type: Spontaneous
  Country: US (occurrence: US)
  Receive Date: 20230606
  Receipt Date: 20230606
  Transmission Date: 20230722
  Serious: No
  Sender: FDA-Public Use
  Company Number: US-SA-SAC20230602000798

PATIENT

DRUGS (1)
  1. TAXOTERE [Suspect]
     Active Substance: DOCETAXEL
     Dosage: UNK
     Route: 065
     Dates: start: 201806, end: 201807

REACTIONS (9)
  - Skin tightness [Unknown]
  - Blister [Unknown]
  - Injection site induration [Unknown]
  - Skin exfoliation [Unknown]
  - Rhinorrhoea [Unknown]
  - Erythema [Unknown]
  - Mucosal inflammation [Unknown]
  - Lacrimation increased [Unknown]
  - Dysphagia [Unknown]

NARRATIVE: CASE EVENT DATE: 20180601
